FAERS Safety Report 7321029-X (Version None)
Quarter: 2011Q1

REPORT INFORMATION
  Report Type: 
  Country: None (occurrence: None)
  Receive Date: 20110228
  Receipt Date: 20110223
  Transmission Date: 20110831
  Serious: Yes (Hospitalization)
  Sender: FDA-Public Use
  Company Number: KR-PFIZER INC-2006052904

PATIENT
  Age: 70 Year
  Sex: Male
  Weight: 63 kg

DRUGS (10)
  1. METOLAZONE [Concomitant]
     Route: 048
     Dates: start: 20050701
  2. ALLOPURINOL [Concomitant]
     Route: 048
     Dates: start: 20060331, end: 20060414
  3. RAMIPRIL [Concomitant]
     Route: 048
     Dates: start: 20010101, end: 20060415
  4. ALBUMIN (HUMAN) [Concomitant]
     Route: 042
     Dates: start: 20050414
  5. CARVEDILOL [Concomitant]
     Route: 048
     Dates: start: 20050424
  6. VALSARTAN [Concomitant]
     Route: 048
     Dates: start: 20050419, end: 20060423
  7. ATORVASTATIN CALCIUM [Concomitant]
     Route: 048
     Dates: start: 20050701
  8. FUROSEMIDE [Concomitant]
     Route: 042
     Dates: start: 20050414, end: 20060419
  9. SUNITINIB MALATE [Suspect]
     Indication: METASTATIC RENAL CELL CARCINOMA
     Dosage: 50 MG, 1X/DAY
     Route: 048
     Dates: start: 20060406, end: 20060422
  10. CARVEDILOL [Concomitant]
     Route: 048
     Dates: start: 20050417, end: 20060419

REACTIONS (3)
  - SEPSIS [None]
  - BLOOD UREA INCREASED [None]
  - BLOOD CREATININE INCREASED [None]
